FAERS Safety Report 7803045-4 (Version None)
Quarter: 2011Q4

REPORT INFORMATION
  Report Type: 
  Country: None (occurrence: None)
  Receive Date: 20111007
  Receipt Date: 20110927
  Transmission Date: 20120403
  Serious: Yes (Hospitalization)
  Sender: FDA-Public Use
  Company Number: US-BAYER-201039310NA

PATIENT
  Age: 47 Year
  Sex: Female
  Weight: 95.692 kg

DRUGS (6)
  1. YAZ [Suspect]
     Indication: CONTRACEPTION
     Dosage: UNK
     Dates: start: 20070501, end: 20070801
  2. BACTRIM DS [Concomitant]
  3. LISINOPRIL [Concomitant]
  4. YAZ [Suspect]
     Dosage: UNK
     Dates: start: 20070501, end: 20070901
  5. PRAVASTATIN [Concomitant]
  6. YASMIN [Suspect]
     Indication: CONTRACEPTION
     Dosage: UNK
     Dates: start: 20070515

REACTIONS (5)
  - ISCHAEMIC STROKE [None]
  - WRIST FRACTURE [None]
  - AMNESIA [None]
  - CEREBROVASCULAR ACCIDENT [None]
  - OEDEMA PERIPHERAL [None]
